FAERS Safety Report 8037171-4 (Version None)
Quarter: 2011Q4

REPORT INFORMATION
  Report Type: 
  Country: None (occurrence: None)
  Receive Date: 20111202
  Receipt Date: 20110201
  Transmission Date: 20120403
  Serious: Yes (Hospitalization)
  Sender: FDA-Public Use
  Company Number: 2011SP004773

PATIENT
  Age: 20 Year
  Sex: Female
  Weight: 54.4316 kg

DRUGS (1)
  1. NUVARING [Suspect]
     Indication: CONTRACEPTION
     Dates: start: 20081202, end: 20090129

REACTIONS (5)
  - ORAL SURGERY [None]
  - DENTAL CARE [None]
  - DEEP VEIN THROMBOSIS [None]
  - MENTAL DISORDER [None]
  - EMOTIONAL DISORDER [None]
